FAERS Safety Report 7546205-2 (Version None)
Quarter: 2011Q2

REPORT INFORMATION
  Report Type: 
  Country: None (occurrence: None)
  Receive Date: 20110614
  Receipt Date: 20030807
  Transmission Date: 20111010
  Serious: Yes (Other)
  Sender: FDA-Public Use
  Company Number: PHFR2003GB02391

PATIENT
  Sex: Male

DRUGS (7)
  1. FLUOXETINE [Concomitant]
     Indication: DEPRESSION
     Dosage: 20 MG, BID
     Route: 048
  2. CLOZAPINE [Suspect]
     Indication: SCHIZOPHRENIA
     Dosage: 75 MG, QD
     Route: 048
     Dates: start: 20021024
  3. MULTIVIT [Concomitant]
     Dosage: 1 TABLET
     Route: 048
  4. VENTOLIN HFA [Concomitant]
     Indication: ASTHMA
     Dosage: UNK
  5. CLOZAPINE [Suspect]
     Dosage: 100 MG, MANE
     Route: 048
  6. BECOTIDE [Concomitant]
     Indication: ASTHMA
  7. CLOZAPINE [Suspect]
     Dosage: 200 MG,  NOCTE
     Route: 048

REACTIONS (5)
  - WEIGHT DECREASED [None]
  - HAEMOGLOBIN DECREASED [None]
  - HEPATITIS C [None]
  - MALAISE [None]
  - GASTRITIS [None]
